FAERS Safety Report 8415428-2 (Version None)
Quarter: 2012Q2

REPORT INFORMATION
  Report Type: 
  Country: None (occurrence: None)
  Receive Date: 20120606
  Receipt Date: 20120524
  Transmission Date: 20120825
  Serious: No
  Sender: FDA-Public Use
  Company Number: US-ASTRAZENECA-2012SE33470

PATIENT
  Sex: Female
  Weight: 65.8 kg

DRUGS (1)
  1. FASLODEX [Suspect]
     Indication: BREAST CANCER METASTATIC
     Route: 030

REACTIONS (10)
  - DYSPHAGIA [None]
  - ABDOMINAL PAIN UPPER [None]
  - MALAISE [None]
  - HOT FLUSH [None]
  - NAUSEA [None]
  - ASTHENIA [None]
  - CHEST PAIN [None]
  - APHAGIA [None]
  - HYPERHIDROSIS [None]
  - DEHYDRATION [None]
